FAERS Safety Report 6022422-8 (Version None)
Quarter: 2008Q4

REPORT INFORMATION
  Report Type: 
  Country: None (occurrence: None)
  Receive Date: 20081223
  Receipt Date: 20081223
  Transmission Date: 20090506
  Serious: Yes (Other)
  Sender: FDA-Public Use
  Company Number: None

PATIENT
  Age: 52 Year
  Sex: Male

DRUGS (2)
  1. ALLOPURINOL [Suspect]
     Indication: GOUT
     Dosage: 1/2 TABLET DAILY
     Dates: start: 20081101
  2. ALLOPURINOL [Suspect]
     Indication: PROPHYLAXIS
     Dosage: 1/2 TABLET DAILY
     Dates: start: 20081101

REACTIONS (2)
  - GOUT [None]
  - PRODUCT QUALITY ISSUE [None]
